FAERS Safety Report 5696488-9 (Version None)
Quarter: 2008Q2

REPORT INFORMATION
  Report Type: 
  Country: None (occurrence: None)
  Receive Date: 20080408
  Receipt Date: 20080310
  Transmission Date: 20081010
  Serious: No
  Sender: FDA-Public Use
  Company Number: US-BOEHRINGER INGELHEIM GMBH, GERMANY-2008-BP-03629BP

PATIENT
  Sex: Male

DRUGS (4)
  1. FLOMAX [Suspect]
     Route: 048
     Dates: start: 20071201
  2. COUMADIN [Concomitant]
     Indication: MESENTERIC VEIN THROMBOSIS
     Route: 048
     Dates: start: 19980101
  3. SYNTHROID [Concomitant]
     Indication: HYPOTHYROIDISM
     Route: 048
  4. PRINIVIL [Concomitant]
     Indication: HYPERTENSION
     Route: 048

REACTIONS (5)
  - ABDOMINAL PAIN [None]
  - ASTHENIA [None]
  - FALL [None]
  - FEELING ABNORMAL [None]
  - HEAD INJURY [None]
